FAERS Safety Report 12196569 (Version 1)
Quarter: 2016Q1

REPORT INFORMATION
  Report Type: Spontaneous
  Country: JP (occurrence: JP)
  Receive Date: 20160321
  Receipt Date: 20160321
  Transmission Date: 20160526
  Serious: Yes (Other)
  Sender: FDA-Public Use
  Company Number: JP-PFIZER INC-2016165229

PATIENT

DRUGS (1)
  1. SELARA [Suspect]
     Active Substance: EPLERENONE
     Route: 048

REACTIONS (2)
  - Loss of consciousness [Unknown]
  - Dysphagia [Unknown]
